FAERS Safety Report 4861190-X (Version None)
Quarter: 2005Q4

REPORT INFORMATION
  Report Type: 
  Country: None (occurrence: None)
  Receive Date: 20051220
  Receipt Date: 20051215
  Transmission Date: 20060501
  Serious: Yes (Hospitalization)
  Sender: FDA-Public Use
  Company Number: JP-BRACCO-BRO-009670

PATIENT
  Age: 70 Year
  Sex: Male

DRUGS (2)
  1. IOPAMIRON [Suspect]
     Indication: ANGINA PECTORIS
     Route: 022
     Dates: start: 20051208, end: 20051208
  2. IOPAMIRON [Suspect]
     Route: 022
     Dates: start: 20051208, end: 20051208

REACTIONS (2)
  - CONDITION AGGRAVATED [None]
  - INTERSTITIAL LUNG DISEASE [None]
